FAERS Safety Report 15462612 (Version 8)
Quarter: 2019Q3

REPORT INFORMATION
  Report Type: Report from Study
  Country: CA (occurrence: CA)
  Receive Date: 20181004
  Receipt Date: 20190705
  Transmission Date: 20191004
  Serious: Yes (Other)
  Sender: FDA-Public Use
  Company Number: CA-BRISTOL-MYERS SQUIBB COMPANY-BMS-2018-066054

PATIENT
  Age: 73 Year
  Sex: Female

DRUGS (1)
  1. NIVOLUMAB [Suspect]
     Active Substance: NIVOLUMAB
     Indication: MALIGNANT MELANOMA
     Dosage: 480 MG, Q4WK
     Route: 042
     Dates: start: 20180703

REACTIONS (31)
  - Rash [Recovering/Resolving]
  - Rhinorrhoea [Unknown]
  - Polymyalgia rheumatica [Unknown]
  - Fatigue [Recovering/Resolving]
  - Depression [Unknown]
  - Dizziness [Unknown]
  - Emotional disorder [Unknown]
  - Dyspnoea [Recovering/Resolving]
  - Pyrexia [Unknown]
  - Musculoskeletal pain [Unknown]
  - General physical health deterioration [Unknown]
  - Depressed mood [Unknown]
  - Cough [Recovering/Resolving]
  - Muscle spasms [Recovering/Resolving]
  - Sleep disorder [Unknown]
  - Myalgia [Unknown]
  - Neck pain [Unknown]
  - Headache [Unknown]
  - Pain [Unknown]
  - Arthralgia [Unknown]
  - Musculoskeletal stiffness [Unknown]
  - Dyspnoea exertional [Unknown]
  - Contusion [Unknown]
  - Diarrhoea [Unknown]
  - Asthenia [Unknown]
  - Neoplasm [Unknown]
  - Skin atrophy [Unknown]
  - Irritability [Unknown]
  - Muscular weakness [Unknown]
  - Mood altered [Unknown]
  - Pain in extremity [Unknown]

NARRATIVE: CASE EVENT DATE: 20180703
